FAERS Safety Report 17173021 (Version 1)
Quarter: 2019Q4

REPORT INFORMATION
  Report Type: Spontaneous
  Country: US (occurrence: US)
  Receive Date: 20191219
  Receipt Date: 20191219
  Transmission Date: 20200122
  Serious: No
  Sender: FDA-Public Use
  Company Number: US-JNJFOC-20191219301

PATIENT
  Sex: Female

DRUGS (2)
  1. REMICADE [Suspect]
     Active Substance: INFLIXIMAB
     Indication: CROHN^S DISEASE
     Route: 063
     Dates: start: 2015, end: 2017
  2. REMICADE [Suspect]
     Active Substance: INFLIXIMAB
     Route: 063
     Dates: end: 20180221

REACTIONS (1)
  - Maternal exposure during breast feeding [Not Recovered/Not Resolved]
